FAERS Safety Report 20773433 (Version 2)
Quarter: 2022Q2

REPORT INFORMATION
  Report Type: Spontaneous
  Country: CA (occurrence: None)
  Receive Date: 20220502
  Receipt Date: 20220513
  Transmission Date: 20220721
  Serious: Yes (Other)
  Sender: FDA-Public Use
  Company Number: CA-PFIZER INC-202200634004

PATIENT
  Age: 26 Year
  Sex: Male

DRUGS (3)
  1. METHOTREXATE [Suspect]
     Active Substance: METHOTREXATE
     Indication: Product used for unknown indication
     Route: 065
     Dates: start: 201701
  2. STELARA [Concomitant]
     Active Substance: USTEKINUMAB
     Dosage: (EVERY 4 WEEKS)
     Route: 058
     Dates: start: 202008
  3. STELARA [Concomitant]
     Active Substance: USTEKINUMAB
     Dosage: Q 4 WEEKS
     Route: 058

REACTIONS (2)
  - Colitis ulcerative [Not Recovered/Not Resolved]
  - Drug ineffective [Unknown]
